FAERS Safety Report 8098513-7 (Version None)
Quarter: 2012Q1

REPORT INFORMATION
  Report Type: 
  Country: None (occurrence: None)
  Receive Date: 20120129
  Receipt Date: 20110913
  Transmission Date: 20120608
  Serious: No
  Sender: FDA-Public Use
  Company Number: US-ABBOTT-11P-163-0854722-00

PATIENT
  Age: 37 Year
  Sex: Female

DRUGS (11)
  1. VERAPAMIL [Concomitant]
     Indication: ANXIETY
  2. AMBIEN [Concomitant]
     Indication: INSOMNIA
     Dosage: AT BEDTIME
  3. SERTRALINE HYDROCHLORIDE [Concomitant]
     Indication: DEPRESSION
     Dosage: DAILY
  4. SYMBICORT [Concomitant]
     Indication: ASTHMA
     Dosage: DAILY
  5. VERAPAMIL [Concomitant]
     Indication: HYPERTENSION
  6. ORTHO TRI-CYCLEN [Concomitant]
     Indication: CONTRACEPTION
     Dosage: DAILY
  7. HUMIRA [Suspect]
     Indication: PSORIATIC ARTHROPATHY
     Dates: start: 20110815
  8. CLONAZEPAM [Concomitant]
     Indication: ANXIETY
  9. VERAPAMIL [Concomitant]
     Indication: DEPRESSION
  10. SERTRALINE HYDROCHLORIDE [Concomitant]
     Indication: ANXIETY
  11. TRAZODONE HCL [Concomitant]
     Indication: INSOMNIA
     Dosage: AT BEDTIME

REACTIONS (4)
  - INJECTION SITE NODULE [None]
  - INJECTION SITE HAEMORRHAGE [None]
  - DEVICE MALFUNCTION [None]
  - WRONG TECHNIQUE IN DRUG USAGE PROCESS [None]
